FAERS Safety Report 13157771 (Version 1)
Quarter: 2017Q1

REPORT INFORMATION
  Report Type: Spontaneous
  Country: US (occurrence: US)
  Receive Date: 20170127
  Receipt Date: 20170127
  Transmission Date: 20170428
  Serious: Yes (Hospitalization)
  Sender: FDA-Public Use
  Company Number: US-JNJFOC-20161225324

PATIENT
  Sex: Male
  Weight: 90.72 kg

DRUGS (3)
  1. REMICADE [Suspect]
     Active Substance: INFLIXIMAB
     Indication: CROHN^S DISEASE
     Dosage: 5 OR 6 VIALS
     Route: 042
     Dates: start: 2009, end: 2015
  2. FINASTERIDE. [Suspect]
     Active Substance: FINASTERIDE
     Indication: ALOPECIA
     Route: 065
  3. REMICADE [Suspect]
     Active Substance: INFLIXIMAB
     Indication: CROHN^S DISEASE
     Dosage: 5 OR 6 VIALS
     Route: 042
     Dates: start: 201605

REACTIONS (6)
  - Crohn^s disease [Unknown]
  - Musculoskeletal stiffness [Not Recovered/Not Resolved]
  - Cyst [Unknown]
  - Bone cyst [Not Recovered/Not Resolved]
  - Malaise [Unknown]
  - Alopecia [Unknown]

NARRATIVE: CASE EVENT DATE: 2016
